FAERS Safety Report 9783694 (Version 1)
Quarter: 2013Q4

REPORT INFORMATION
  Report Type: Spontaneous
  Country: US (occurrence: None)
  Receive Date: 20131223
  Receipt Date: 20131223
  Transmission Date: 20140711
  Serious: Yes (Other)
  Sender: FDA-Public Use
  Company Number: EUS-2011-00762

PATIENT
  Age: 3 Year
  Sex: Female

DRUGS (1)
  1. ERWINASE (ASPARAGINASE) [Suspect]
     Indication: ACUTE LYMPHOCYTIC LEUKAEMIA
     Dosage: (14500 IU, CYCLE 1), INTRAMUSCULAR
     Route: 030
     Dates: start: 20100813, end: 20100825

REACTIONS (5)
  - Hypersensitivity [None]
  - Hyperglycaemia [None]
  - Liver function test abnormal [None]
  - Aspartate aminotransferase increased [None]
  - Alanine aminotransferase increased [None]
